FAERS Safety Report 9188407 (Version 6)
Quarter: 2014Q1

REPORT INFORMATION
  Report Type: Report from Study
  Country: CA (occurrence: CA)
  Receive Date: 20130325
  Receipt Date: 20140321
  Transmission Date: 20141002
  Serious: Yes (Hospitalization, Other)
  Sender: FDA-Public Use
  Company Number: CA-ROCHE-1136418

PATIENT
  Age: 51 Year
  Sex: Female
  Weight: 65.6 kg

DRUGS (11)
  1. ACTEMRA [Suspect]
     Indication: RHEUMATOID ARTHRITIS
     Route: 042
     Dates: start: 20111222
  2. ASPIRIN, BABY [Concomitant]
  3. CRESTOR [Concomitant]
  4. SYNTHROID [Concomitant]
  5. HYDROXYCHLOROQUINE [Concomitant]
  6. LANTUS [Concomitant]
     Indication: DIABETES MELLITUS
  7. HUMALOG INSULIN [Concomitant]
     Indication: DIABETES MELLITUS
  8. METHOTREXATE [Concomitant]
     Route: 058
  9. FOLIC ACID [Concomitant]
  10. CORTISONE [Concomitant]
  11. RAMIPRIL [Concomitant]
     Indication: BLOOD PRESSURE

REACTIONS (11)
  - Localised infection [Unknown]
  - Rheumatoid nodule [Not Recovered/Not Resolved]
  - Localised infection [Not Recovered/Not Resolved]
  - Mass [Not Recovered/Not Resolved]
  - Nodule [Not Recovered/Not Resolved]
  - Wrist fracture [Unknown]
  - Fall [Unknown]
  - Contusion [Unknown]
  - Dyspepsia [Not Recovered/Not Resolved]
  - Nasopharyngitis [Not Recovered/Not Resolved]
  - Arthralgia [Not Recovered/Not Resolved]
